FAERS Safety Report 7007812-9 (Version None)
Quarter: 2010Q3

REPORT INFORMATION
  Report Type: 
  Country: None (occurrence: None)
  Receive Date: 20100922
  Receipt Date: 20100920
  Transmission Date: 20110219
  Serious: Yes (Death, Hospitalization)
  Sender: FDA-Public Use
  Company Number: US-BRISTOL-MYERS SQUIBB COMPANY-15294614

PATIENT
  Age: 82 Year
  Sex: Female
  Weight: 101 kg

DRUGS (3)
  1. COUMADIN [Suspect]
     Route: 065
  2. LOVENOX [Suspect]
     Indication: ATRIAL FIBRILLATION
     Dosage: INJEC
     Route: 058
     Dates: start: 20090702, end: 20090716
  3. CALCIUM CHANNEL BLOCKER [Concomitant]

REACTIONS (3)
  - DEATH [None]
  - ISCHAEMIC HEPATITIS [None]
  - MUSCLE HAEMORRHAGE [None]
